FAERS Safety Report 8259063-8 (Version None)
Quarter: 2012Q2

REPORT INFORMATION
  Report Type: 
  Country: None (occurrence: None)
  Receive Date: 20120404
  Receipt Date: 20120321
  Transmission Date: 20120825
  Serious: Yes (Other)
  Sender: FDA-Public Use
  Company Number: JP-ROCHE-793398

PATIENT

DRUGS (5)
  1. OXALIPLATIN [Suspect]
     Indication: COLORECTAL CANCER
     Route: 065
  2. AVASTIN [Suspect]
     Indication: COLORECTAL CANCER
     Route: 065
  3. LEUCOVORIN CALCIUM [Suspect]
     Indication: COLORECTAL CANCER
     Route: 065
  4. IRINOTECAN HYDROCHLORIDE [Suspect]
     Indication: COLORECTAL CANCER
     Route: 065
  5. FLUOROURACIL [Suspect]
     Indication: COLORECTAL CANCER
     Route: 065

REACTIONS (1)
  - STOMATITIS [None]
